FAERS Safety Report 6773917-0 (Version None)
Quarter: 2010Q2

REPORT INFORMATION
  Report Type: 
  Country: None (occurrence: None)
  Receive Date: 20100615
  Receipt Date: 20100615
  Transmission Date: 20101027
  Serious: Yes (Disabling)
  Sender: FDA-Public Use
  Company Number: None

PATIENT
  Age: 68 Year
  Weight: 81.6475 kg

DRUGS (1)
  1. CLOTRIMAZOLE [Suspect]
     Indication: CANDIDIASIS
     Dosage: 10 MG TROCHE 5 X IN MOUTH
     Route: 048
     Dates: start: 20090604, end: 20090620

REACTIONS (5)
  - AGEUSIA [None]
  - APTYALISM [None]
  - DIZZINESS [None]
  - SWOLLEN TONGUE [None]
  - THERMAL BURN [None]
